FAERS Safety Report 7866354-9 (Version None)
Quarter: 2011Q4

REPORT INFORMATION
  Report Type: 
  Country: None (occurrence: None)
  Receive Date: 20111028
  Receipt Date: 20110603
  Transmission Date: 20120403
  Serious: No
  Sender: FDA-Public Use
  Company Number: US-GLAXOSMITHKLINE-A0930170A

PATIENT
  Age: 42 Year
  Sex: Male
  Weight: 76.4 kg

DRUGS (11)
  1. LANOXIN [Concomitant]
  2. SERTRALINE HYDROCHLORIDE [Concomitant]
  3. LOVASTATIN [Concomitant]
  4. CARBAMAZEPINE [Concomitant]
  5. HYDROCODONE BITARTRATE [Concomitant]
  6. VENTOLIN HFA [Concomitant]
  7. ADVAIR DISKUS 100/50 [Suspect]
     Route: 065
     Dates: start: 20110523, end: 20110524
  8. OMEPRAZOLE [Concomitant]
  9. PREDNISONE [Concomitant]
  10. ADVAIR DISKUS 100/50 [Suspect]
     Indication: ASTHMA
     Dosage: 1PUFF TWICE PER DAY
     Route: 055
     Dates: start: 20040101
  11. CLONAZEPAM [Concomitant]

REACTIONS (2)
  - LOCAL SWELLING [None]
  - PHARYNGEAL OEDEMA [None]
